FAERS Safety Report 17201188 (Version 1)
Quarter: 2019Q4

REPORT INFORMATION
  Report Type: Spontaneous
  Country: JP (occurrence: JP)
  Receive Date: 20191226
  Receipt Date: 20191226
  Transmission Date: 20200122
  Serious: Yes (Hospitalization, Disabling, Other)
  Sender: FDA-Public Use
  Company Number: JP-ELI_LILLY_AND_COMPANY-JP201908012929

PATIENT
  Age: 70 Year
  Sex: Female
  Weight: 42 kg

DRUGS (9)
  1. VERZENIO [Suspect]
     Active Substance: ABEMACICLIB
     Dosage: 100 MG, BID
     Route: 048
     Dates: start: 20190410, end: 20190701
  2. FEMARA [Concomitant]
     Active Substance: LETROZOLE
     Indication: BREAST CANCER RECURRENT
     Dosage: 2.5 MG, EACH MORNING
     Route: 048
     Dates: start: 20190316, end: 20190825
  3. METHYCOBAL [Concomitant]
     Active Substance: METHYLCOBALAMIN
     Dosage: 500 UG
  4. FUROSEMIDE. [Concomitant]
     Active Substance: FUROSEMIDE
  5. LOXOPROFEN [Concomitant]
     Active Substance: LOXOPROFEN
     Dosage: 60 MG
  6. VERZENIO [Suspect]
     Active Substance: ABEMACICLIB
     Indication: BREAST CANCER RECURRENT
     Dosage: 150 MG, BID
     Route: 048
     Dates: start: 20190315, end: 20190325
  7. TEPRENONE [Concomitant]
     Active Substance: TEPRENONE
     Dosage: 50 MG
  8. BIOFERMIN R [Concomitant]
     Active Substance: DIETARY SUPPLEMENT\PROBIOTICS
  9. VERZENIO [Suspect]
     Active Substance: ABEMACICLIB
     Dosage: 100 MG, BID
     Route: 048
     Dates: start: 20190814, end: 20190825

REACTIONS (7)
  - Hydronephrosis [Unknown]
  - Oedema [Unknown]
  - Malaise [Unknown]
  - Malignant neoplasm progression [Unknown]
  - Renal impairment [Not Recovered/Not Resolved]
  - Dyspnoea [Unknown]
  - Bone marrow failure [Recovered/Resolved]

NARRATIVE: CASE EVENT DATE: 20190702
